FAERS Safety Report 20645391 (Version 2)
Quarter: 2022Q2

REPORT INFORMATION
  Report Type: Spontaneous
  Country: US (occurrence: US)
  Receive Date: 20220328
  Receipt Date: 20220509
  Transmission Date: 20220721
  Serious: No
  Sender: FDA-Public Use
  Company Number: US-PFIZER INC-202200293767

PATIENT
  Age: 61 Year
  Sex: Female

DRUGS (16)
  1. INLYTA [Suspect]
     Active Substance: AXITINIB
     Dosage: TAKE 3 TABLETS TWICE A DAY
     Route: 048
     Dates: start: 20210129
  2. CALCIUM CARBONATE [Concomitant]
     Active Substance: CALCIUM CARBONATE
     Dosage: UNK
  3. ELIQUIS [Concomitant]
     Active Substance: APIXABAN
     Dosage: UNK
  4. FLUOXETINE HYDROCHLORIDE [Concomitant]
     Active Substance: FLUOXETINE HYDROCHLORIDE
     Dosage: UNK
  5. HYDROCORTISONE [Concomitant]
     Active Substance: HYDROCORTISONE
     Dosage: UNK
  6. MAGNESIUM OXIDE [Concomitant]
     Active Substance: MAGNESIUM OXIDE
     Dosage: UNK
  7. METHYLPHENIDATE HYDROCHLORIDE [Concomitant]
     Active Substance: METHYLPHENIDATE HYDROCHLORIDE
     Dosage: UNK
  8. OXYCODONE HYDROCHLORIDE [Concomitant]
     Active Substance: OXYCODONE HYDROCHLORIDE
     Dosage: UNK
  9. PROFERRIN-FORTE [Concomitant]
     Dosage: UNK
  10. SYNTHROID [Concomitant]
     Active Substance: LEVOTHYROXINE SODIUM
     Dosage: UNK
  11. RETINOL [Concomitant]
     Active Substance: RETINOL
     Dosage: UNK
  12. VITAMIN C [Concomitant]
     Active Substance: ASCORBIC ACID
     Dosage: UNK
  13. VITAMIN D3 [Concomitant]
     Active Substance: CHOLECALCIFEROL
     Dosage: UNK
  14. VITAMIN E [Concomitant]
     Active Substance: .ALPHA.-TOCOPHEROL
     Dosage: UNK
  15. MENADIONE [Concomitant]
     Active Substance: MENADIONE
     Dosage: UNK
  16. ZINC [Concomitant]
     Active Substance: ZINC
     Dosage: UNK

REACTIONS (10)
  - Dizziness [Unknown]
  - Headache [Unknown]
  - Stomatitis [Not Recovered/Not Resolved]
  - Diarrhoea [Not Recovered/Not Resolved]
  - Anorectal discomfort [Not Recovered/Not Resolved]
  - Fatigue [Not Recovered/Not Resolved]
  - Palmar-plantar erythrodysaesthesia syndrome [Not Recovered/Not Resolved]
  - Arthralgia [Not Recovered/Not Resolved]
  - Pain in extremity [Not Recovered/Not Resolved]
  - Cancer pain [Not Recovered/Not Resolved]
